FAERS Safety Report 4989824-X (Version None)
Quarter: 2006Q2

REPORT INFORMATION
  Report Type: 
  Country: None (occurrence: None)
  Receive Date: 20060501
  Receipt Date: 20060418
  Transmission Date: 20061013
  Serious: Yes (Death, Hospitalization)
  Sender: FDA-Public Use
  Company Number: 805#9#2006-00076

PATIENT
  Age: 86 Year
  Sex: Male

DRUGS (8)
  1. ALPROSTADIL [Suspect]
     Indication: ARTERIOSCLEROSIS OBLITERANS
     Dosage: 80 MCG (40 MCG 2 IN 2 DAY (S) )
     Route: 041
     Dates: start: 20060128, end: 20060305
  2. AZOSEMIDE (AZOSEMIDE) [Concomitant]
  3. VOGLIBOSE (VOGLIBOSE) [Concomitant]
  4. SARPOGRELATE HYDROCHLORIDE [Concomitant]
  5. NICORANDIL                  (NICORANDIL) [Concomitant]
  6. TAMSULOSIN HYDROCHLORIDE                   (TAMSULOSIN HYDROCHLORIDE) [Concomitant]
  7. PURSENNID                (SENNA LEAF) [Concomitant]
  8. QUNIAPRIL HYDROCHLORIDE                 (QUINAPRIL HYDROCHLORIDE) [Concomitant]

REACTIONS (4)
  - CARDIAC FAILURE [None]
  - PNEUMONIA [None]
  - PNEUMONIA ASPIRATION [None]
  - STAPHYLOCOCCAL INFECTION [None]
